FAERS Safety Report 9720692 (Version 1)
Quarter: 2013Q4

REPORT INFORMATION
  Report Type: Report from Study
  Country: MX (occurrence: MX)
  Receive Date: 20131129
  Receipt Date: 20131129
  Transmission Date: 20140711
  Serious: Yes (Death, Other)
  Sender: FDA-Public Use
  Company Number: PHHY2013MX137484

PATIENT
  Age: 86 Year
  Sex: Male

DRUGS (1)
  1. STALEVO [Suspect]
     Indication: PARKINSON^S DISEASE
     Dosage: UNK UKN, UNK (200/50/12.5 MG)
     Route: 048
     Dates: start: 201307

REACTIONS (3)
  - Infarction [Fatal]
  - Renal disorder [Unknown]
  - Peritonitis [Unknown]
